FAERS Safety Report 9339127 (Version 2)
Quarter: 2013Q2

REPORT INFORMATION
  Report Type: Spontaneous
  Country: US (occurrence: US)
  Receive Date: 20130610
  Receipt Date: 20130614
  Transmission Date: 20140414
  Serious: Yes (Death)
  Sender: FDA-Public Use
  Company Number: US-JNJFOC-20130604116

PATIENT
  Age: 90 Year
  Sex: Male
  Weight: 73.94 kg

DRUGS (1)
  1. XARELTO [Suspect]
     Indication: DEEP VEIN THROMBOSIS
     Route: 048
     Dates: start: 20130430

REACTIONS (5)
  - Gastrointestinal haemorrhage [Fatal]
  - Cardiac failure congestive [Unknown]
  - Renal failure [Unknown]
  - Urogenital haemorrhage [Unknown]
  - Anaemia [Unknown]
